FAERS Safety Report 6385365-6 (Version None)
Quarter: 2009Q4

REPORT INFORMATION
  Report Type: 
  Country: None (occurrence: None)
  Receive Date: 20091002
  Receipt Date: 20080827
  Transmission Date: 20100525
  Serious: No
  Sender: FDA-Public Use
  Company Number: US-ASTRAZENECA-2008UW17718

PATIENT
  Age: 82 Year
  Sex: Female

DRUGS (6)
  1. ARIMIDEX [Suspect]
     Indication: BREAST CANCER FEMALE
     Route: 048
  2. MICARDIS [Concomitant]
     Dosage: 80MG
  3. HYDROCORTISONE [Concomitant]
  4. SULAR [Concomitant]
     Dosage: 10MG
  5. TERAZOSIN HCL [Concomitant]
     Dosage: 5MG
  6. HYDROCORT [Concomitant]
     Dosage: 25MG CUT IN HALF FOUR TIMES

REACTIONS (2)
  - DYSSTASIA [None]
  - MUSCLE SPASMS [None]
